FAERS Safety Report 12809645 (Version 13)
Quarter: 2019Q3

REPORT INFORMATION
  Report Type: Report from Study
  Country: FR (occurrence: FR)
  Receive Date: 20161005
  Receipt Date: 20190919
  Transmission Date: 20191004
  Serious: Yes (Life-Threatening, Hospitalization, Other)
  Sender: FDA-Public Use
  Company Number: FR-AMGEN-FRANI2016135302

PATIENT
  Age: 66 Year
  Sex: Male
  Weight: 138 kg

DRUGS (44)
  1. ETANERCEPT [Suspect]
     Active Substance: ETANERCEPT
     Indication: PSORIASIS
     Dosage: 50 MILLIGRAM, 2 TIMES/WK
     Route: 058
  2. HYTACAND [Suspect]
     Active Substance: CANDESARTAN CILEXETIL\HYDROCHLOROTHIAZIDE
     Dosage: 16 MG, 1X/DAY
     Route: 048
  3. AERIUS [Concomitant]
     Dosage: 5 MG, 1X/DAY
     Route: 048
     Dates: end: 20190628
  4. PARACETAMOL [Concomitant]
     Active Substance: ACETAMINOPHEN
     Dosage: 1 G, 4X/DAY
     Route: 048
  5. DAIVOBET [Concomitant]
     Active Substance: BETAMETHASONE DIPROPIONATE\CALCIPOTRIENE
     Dosage: 1 DF, 1X/DAY
  6. AMLOR [Concomitant]
     Active Substance: AMLODIPINE BESYLATE
     Dosage: 5 MILLIGRAM, QD
     Route: 048
     Dates: end: 20190803
  7. ATACAND [Concomitant]
     Active Substance: CANDESARTAN CILEXETIL
     Dosage: UNK
  8. ALDACTONE [Concomitant]
     Active Substance: SPIRONOLACTONE
     Dosage: UNK
     Dates: start: 20180430, end: 20190803
  9. ALLOPURINOL. [Concomitant]
     Active Substance: ALLOPURINOL
     Dosage: UNK
     Dates: end: 20190803
  10. STELARA [Suspect]
     Active Substance: USTEKINUMAB
     Dosage: 90 MG, EVERY 12 WEEKS
     Route: 058
     Dates: start: 20160316, end: 20180820
  11. TALTZ [Suspect]
     Active Substance: IXEKIZUMAB
     Dosage: 80 MG, EVERY 4 WEEKS
     Route: 058
     Dates: start: 20190218
  12. MOPRAL [Concomitant]
     Active Substance: OMEPRAZOLE
     Dosage: 40 MILLIGRAM, QD
     Route: 048
  13. INEXIUM [Concomitant]
     Active Substance: ESOMEPRAZOLE
     Dosage: UNK
  14. NOVORAPID [Concomitant]
     Active Substance: INSULIN ASPART
     Dosage: UNK
     Dates: start: 20190801
  15. PARACETAMOL [Concomitant]
     Active Substance: ACETAMINOPHEN
     Dosage: 1 GRAM, QID
     Route: 048
  16. HYTACAND [Suspect]
     Active Substance: CANDESARTAN CILEXETIL\HYDROCHLOROTHIAZIDE
     Indication: PRODUCT USED FOR UNKNOWN INDICATION
     Dosage: 16 MILLIGRAM, QD
     Route: 048
  17. COSOPT [Concomitant]
     Active Substance: DORZOLAMIDE HYDROCHLORIDE\TIMOLOL MALEATE
     Dosage: 1 GTT DROPS, QD 1 DROP IN RIGHT EYE ONCE DAILY)
     Route: 047
  18. COUMADINE [Concomitant]
     Active Substance: WARFARIN SODIUM
     Dosage: 4 MG, DAILY
     Route: 048
     Dates: end: 20190803
  19. INSULIN [Concomitant]
     Active Substance: INSULIN NOS
     Dosage: 1 DF, DAILY
     Route: 058
  20. MACROGOL 4000 [Concomitant]
     Active Substance: POLYETHYLENE GLYCOL 4000
     Dosage: UNK
     Dates: start: 20180430
  21. METFORMIN [Concomitant]
     Active Substance: METFORMIN HYDROCHLORIDE
     Dosage: 100 MG, 3X/DAY
     Route: 048
     Dates: end: 20190628
  22. INSULIN [Concomitant]
     Active Substance: INSULIN NOS
     Dosage: 1 DOSAGE FORM, QD
     Route: 058
  23. FORLAX [Concomitant]
     Active Substance: POLYETHYLENE GLYCOL 4000
     Dosage: UNK
  24. FORLAX [Concomitant]
     Active Substance: POLYETHYLENE GLYCOL 4000
     Dosage: UNK
  25. BURINEX [Concomitant]
     Active Substance: BUMETANIDE
     Dosage: UNK
     Dates: start: 20180430, end: 20190628
  26. STELARA [Suspect]
     Active Substance: USTEKINUMAB
     Indication: PSORIASIS
     Dosage: 90 MG, EVERY 4 WEEKS
     Route: 058
     Dates: start: 20160216, end: 20160316
  27. LASILIX SPECIAL [Suspect]
     Active Substance: FUROSEMIDE
     Dosage: 250 MG, 1X/DAY
     Route: 048
  28. COSOPT [Concomitant]
     Active Substance: DORZOLAMIDE HYDROCHLORIDE\TIMOLOL MALEATE
     Dosage: 1 GTT, 1X/DAY (1 DROP IN RIGHT EYE ONCE DAILY)
     Route: 047
  29. DAIVOBET [Concomitant]
     Active Substance: BETAMETHASONE DIPROPIONATE\CALCIPOTRIENE
     Dosage: 1 DOSAGE FORM, QD
  30. TARDYFERON [Concomitant]
     Active Substance: FERROUS SULFATE
     Dosage: UNK
     Dates: end: 20190803
  31. TALTZ [Suspect]
     Active Substance: IXEKIZUMAB
     Indication: PSORIASIS
     Dosage: 160 MG, EVERY 2 WEEKS
     Route: 058
     Dates: start: 20180820
  32. LASILIX SPECIAL [Suspect]
     Active Substance: FUROSEMIDE
     Indication: PRODUCT USED FOR UNKNOWN INDICATION
     Dosage: 250 MILLIGRAM, QD
     Route: 048
  33. MOPRAL [Concomitant]
     Active Substance: OMEPRAZOLE
     Dosage: 40 MG, 1X/DAY
     Route: 048
  34. DUOTRAV [Concomitant]
     Active Substance: TIMOLOL MALEATE\TRAVOPROST
     Dosage: 1 GTT DROPS, QD 1 DROP IN RIGHT EYE ONCE DAILY)
     Route: 047
  35. LAMISIL [Concomitant]
     Active Substance: TERBINAFINE HYDROCHLORIDE
     Dosage: UNK
  36. LANSOPRAZOLE. [Concomitant]
     Active Substance: LANSOPRAZOLE
     Dosage: UNK
     Dates: start: 20180130, end: 20190803
  37. XATRAL [ALFUZOSIN] [Concomitant]
     Dosage: UNK
     Dates: end: 20190803
  38. FUROSEMIDE. [Concomitant]
     Active Substance: FUROSEMIDE
     Dosage: UNK
     Dates: start: 20180130, end: 20190803
  39. ETANERCEPT [Suspect]
     Active Substance: ETANERCEPT
     Dosage: 50 MILLIGRAM, 2 TIMES/WK
     Route: 058
     Dates: start: 201305, end: 20160216
  40. DUOTRAV [Concomitant]
     Active Substance: TIMOLOL MALEATE\TRAVOPROST
     Dosage: 1 GTT, 1X/DAY (1 DROP IN RIGHT EYE ONCE DAILY)
     Route: 047
  41. ATACAND [Concomitant]
     Active Substance: CANDESARTAN CILEXETIL
     Dosage: UNK
  42. INEXIUM [Concomitant]
     Active Substance: ESOMEPRAZOLE
     Dosage: UNK
  43. LAMISIL [Concomitant]
     Active Substance: TERBINAFINE HYDROCHLORIDE
     Dosage: UNK
  44. DIFFU K [Concomitant]
     Active Substance: POTASSIUM CHLORIDE
     Dosage: UNK
     Dates: start: 20180430, end: 20190628

REACTIONS (10)
  - Renal impairment [Recovered/Resolved with Sequelae]
  - Gastrointestinal angiodysplasia [Not Recovered/Not Resolved]
  - Cardiac failure [Recovering/Resolving]
  - Hepatocellular carcinoma [Recovered/Resolved]
  - Cardiac failure [Recovered/Resolved with Sequelae]
  - Diabetes mellitus inadequate control [Recovered/Resolved with Sequelae]
  - Iron deficiency anaemia [Recovering/Resolving]
  - Anaemia [Recovered/Resolved with Sequelae]
  - Blood creatinine increased [Recovered/Resolved]
  - Pneumonia [Recovered/Resolved]

NARRATIVE: CASE EVENT DATE: 20160325
